FAERS Safety Report 8332021-0 (Version None)
Quarter: 2012Q2

REPORT INFORMATION
  Report Type: 
  Country: None (occurrence: None)
  Receive Date: 20120502
  Receipt Date: 20120417
  Transmission Date: 20120825
  Serious: Yes (Hospitalization, Other)
  Sender: FDA-Public Use
  Company Number: CHPA2012US009291

PATIENT
  Age: 70 Year
  Sex: Male

DRUGS (6)
  1. CINNAMON [Concomitant]
     Indication: DIABETES MELLITUS
     Dosage: UNK, UNK
     Route: 048
  2. FERROUS SULFATE TAB [Suspect]
     Indication: ANAEMIA
     Dosage: 1 DF, TIW
     Route: 048
     Dates: start: 20120110, end: 20120410
  3. IRON [Concomitant]
     Dosage: 150 MG, QD
     Route: 048
     Dates: start: 20120401
  4. MULTI-VITAMINS [Concomitant]
     Dosage: 1 DF, QD
     Route: 048
  5. INSULIN [Concomitant]
     Indication: DIABETES MELLITUS
     Dosage: UNK, UNK
     Route: 058
  6. IRON [Concomitant]
     Dosage: 150 MG, QD
     Route: 048
     Dates: end: 20120101

REACTIONS (13)
  - ASTHENIA [None]
  - NAUSEA [None]
  - BLOOD GLUCOSE ABNORMAL [None]
  - MYOCARDIAL INFARCTION [None]
  - CHEST PAIN [None]
  - BLOOD PRESSURE INCREASED [None]
  - PRODUCTIVE COUGH [None]
  - UNDERDOSE [None]
  - PAIN IN EXTREMITY [None]
  - KIDNEY INFECTION [None]
  - ANAEMIA [None]
  - VOLUME BLOOD DECREASED [None]
  - DYSGEUSIA [None]
